FAERS Safety Report 16938351 (Version 1)
Quarter: 2019Q4

REPORT INFORMATION
  Report Type: Spontaneous
  Country: ES (occurrence: ES)
  Receive Date: 20191019
  Receipt Date: 20191019
  Transmission Date: 20200122
  Serious: Yes (Other)
  Sender: FDA-Public Use
  Company Number: ES-ACCORD-158357

PATIENT
  Age: 68 Year
  Sex: Female
  Weight: 53 kg

DRUGS (1)
  1. OXALIPLATIN ACCORD [Suspect]
     Active Substance: OXALIPLATIN
     Indication: RECTAL CANCER
     Dosage: STRENGTH: 5 MG / ML CONCENTRATE FOR SOLUTION FOR INFUSION EFG, 1 VIAL OF 40 ML, 90 MG
     Route: 051
     Dates: start: 20190930

REACTIONS (2)
  - Feeling cold [Recovered/Resolved with Sequelae]
  - Sense of oppression [Recovered/Resolved with Sequelae]

NARRATIVE: CASE EVENT DATE: 20190930
